FAERS Safety Report 17947150 (Version 1)
Quarter: 2020Q2

REPORT INFORMATION
  Report Type: Spontaneous
  Country: IL (occurrence: IL)
  Receive Date: 20200625
  Receipt Date: 20200625
  Transmission Date: 20200714
  Serious: Yes (Other)
  Sender: FDA-Public Use
  Company Number: IL-AMGEN-ISRSP2020097302

PATIENT
  Age: 4 Month
  Sex: Male

DRUGS (2)
  1. ROMIPLOSTIM [Suspect]
     Active Substance: ROMIPLOSTIM
     Indication: PANCYTOPENIA
     Dosage: UNK UNK, QWK
     Route: 065
  2. FILGRASTIM [Suspect]
     Active Substance: FILGRASTIM
     Indication: PANCYTOPENIA
     Dosage: UNK
     Route: 065

REACTIONS (6)
  - Haemolytic anaemia [Recovered/Resolved]
  - Off label use [Unknown]
  - Seizure [Unknown]
  - Cerebral haemorrhage [Unknown]
  - Glomerulonephritis membranoproliferative [Unknown]
  - Nephrotic syndrome [Recovered/Resolved]
